FAERS Safety Report 12226878 (Version 2)
Quarter: 2016Q2

REPORT INFORMATION
  Report Type: Spontaneous
  Country: US (occurrence: US)
  Receive Date: 20160331
  Receipt Date: 20160422
  Transmission Date: 20160815
  Serious: Yes (Life-Threatening, Hospitalization, Other)
  Sender: FDA-Public Use
  Company Number: US-009507513-1603USA013539

PATIENT
  Age: 31 Year
  Sex: Female

DRUGS (1)
  1. NUVARING [Suspect]
     Active Substance: ETHINYL ESTRADIOL\ETONOGESTREL
     Indication: CONTRACEPTION
     Dosage: 1 RING / 3 WEEKS
     Route: 067
     Dates: start: 20151022

REACTIONS (3)
  - Unintended pregnancy [Unknown]
  - Pregnancy with contraceptive device [Unknown]
  - Ectopic pregnancy with contraceptive device [Unknown]

NARRATIVE: CASE EVENT DATE: 201602
